FAERS Safety Report 18960773 (Version 1)
Quarter: 2021Q1

REPORT INFORMATION
  Report Type: Spontaneous
  Country: US (occurrence: US)
  Receive Date: 20210303
  Receipt Date: 20210303
  Transmission Date: 20210420
  Serious: No
  Sender: FDA-Public Use
  Company Number: US-GLENMARK PHARMACEUTICALS-2021GMK051567

PATIENT

DRUGS (1)
  1. CLOBETASOL PROPIONATE CREAM USP, 0.05% [Suspect]
     Active Substance: CLOBETASOL PROPIONATE
     Indication: LICHEN SCLEROSUS
     Dosage: UNK
     Route: 065

REACTIONS (4)
  - Genital herpes [Recovered/Resolved]
  - Product administered at inappropriate site [Unknown]
  - Product use issue [Unknown]
  - Disease recurrence [Recovered/Resolved]
